FAERS Safety Report 9038820 (Version 1)
Quarter: 2013Q1

REPORT INFORMATION
  Report Type: Report from Study
  Country: US (occurrence: US)
  Receive Date: 20130129
  Receipt Date: 20130129
  Transmission Date: 20140127
  Serious: No
  Sender: FDA-Public Use
  Company Number: US-ABBOTT-12P-163-0931501-00

PATIENT
  Age: 68 Year
  Sex: Female

DRUGS (8)
  1. HUMIRA 40 MG/0.8 ML PEN [Suspect]
     Indication: CROHN^S DISEASE
     Dates: start: 20120225
  2. PRILOSEC [Concomitant]
     Indication: GASTROOESOPHAGEAL REFLUX DISEASE
  3. AMBIEN [Concomitant]
     Indication: INSOMNIA
     Dosage: AT NIGHT
  4. PROZAC [Concomitant]
     Indication: DEPRESSION
     Dosage: 10MG DAILY (FOR MANY YEARS)
  5. BENTYL [Concomitant]
     Indication: ABDOMINAL DISCOMFORT
     Dosage: (FOR YEARS) AS REQUIRED
  6. FOLIC ACID [Concomitant]
     Indication: PRODUCT USED FOR UNKNOWN INDICATION
     Dosage: 400MCG DAILY
  7. FLAX SEED OIL [Concomitant]
     Indication: PRODUCT USED FOR UNKNOWN INDICATION
     Dosage: DAILY
  8. IRON [Concomitant]
     Indication: BLOOD IRON DECREASED
     Dosage: 325MG DAILY (FOR YEARS)

REACTIONS (4)
  - Injection site pain [Recovering/Resolving]
  - Nasopharyngitis [Recovered/Resolved]
  - Pneumonia [Recovered/Resolved]
  - Arthralgia [Unknown]
